FAERS Safety Report 16151151 (Version 2)
Quarter: 2020Q2

REPORT INFORMATION
  Report Type: Report from Study
  Country: MY (occurrence: MY)
  Receive Date: 20190403
  Receipt Date: 20200517
  Transmission Date: 20200713
  Serious: Yes (Death)
  Sender: FDA-Public Use
  Company Number: PHHY2019MY075428

PATIENT
  Sex: Male

DRUGS (1)
  1. TASIGNA [Suspect]
     Active Substance: NILOTINIB
     Indication: CHRONIC MYELOID LEUKAEMIA
     Dosage: 300 MG, BID (Q12H)
     Route: 048

REACTIONS (2)
  - Haemophagocytic lymphohistiocytosis [Fatal]
  - Sepsis [Fatal]
